FAERS Safety Report 5680649-9 (Version None)
Quarter: 2008Q1

REPORT INFORMATION
  Report Type: 
  Country: None (occurrence: None)
  Receive Date: 20080326
  Receipt Date: 20080207
  Transmission Date: 20080703
  Serious: No
  Sender: FDA-Public Use
  Company Number: A0708117A

PATIENT
  Age: 6 Year
  Sex: Male

DRUGS (7)
  1. FLOVENT [Suspect]
     Indication: ASTHMA
     Dosage: 110MCG PER DAY
     Route: 055
  2. SINGULAIR [Concomitant]
  3. ZYRTEC [Concomitant]
  4. PULMICORT [Concomitant]
  5. ZANTAC [Concomitant]
  6. ALBUTEROL [Concomitant]
  7. EPIPEN [Concomitant]

REACTIONS (1)
  - COUGH [None]
